FAERS Safety Report 6419493-3 (Version None)
Quarter: 2009Q4

REPORT INFORMATION
  Report Type: 
  Country: None (occurrence: None)
  Receive Date: 20091029
  Receipt Date: 20091027
  Transmission Date: 20100525
  Serious: Yes (Death)
  Sender: FDA-Public Use
  Company Number: CA-B.I. PHARMACEUTICALS,INC./RIDGEFIELD-2009-CN-00644CN

PATIENT
  Age: 53 Year
  Sex: Male

DRUGS (3)
  1. CATAPRES [Suspect]
     Indication: PAIN
     Route: 037
     Dates: start: 20090401
  2. HYDROMORPHONE [Concomitant]
     Indication: PAIN
     Route: 037
     Dates: start: 20090401
  3. BUPIVACAINE [Concomitant]
     Indication: PAIN
     Route: 037
     Dates: start: 20090401

REACTIONS (1)
  - OESOPHAGEAL CANCER METASTATIC [None]
